FAERS Safety Report 10355155 (Version 3)
Quarter: 2014Q4

REPORT INFORMATION
  Report Type: Report from Study
  Country: IN (occurrence: IN)
  Receive Date: 20140731
  Receipt Date: 20141229
  Transmission Date: 20150528
  Serious: Yes (Other)
  Sender: FDA-Public Use
  Company Number: PHHY2014IN088297

PATIENT
  Age: 60 Year
  Sex: Male
  Weight: 55 kg

DRUGS (3)
  1. CERTICAN [Suspect]
     Active Substance: EVEROLIMUS
     Indication: TRANSPLANT
     Dosage: 0.25 MG, QD
     Route: 048
     Dates: start: 201407
  2. MYFORTIC [Suspect]
     Active Substance: MYCOPHENOLATE SODIUM
     Indication: TRANSPLANT
     Dosage: 180 MG, BID
     Route: 048
     Dates: start: 201409
  3. NEORAL [Suspect]
     Active Substance: CYCLOSPORINE
     Indication: TRANSPLANT
     Dosage: 25 MG, BID
     Route: 048
     Dates: start: 200409

REACTIONS (28)
  - Mean cell haemoglobin increased [Unknown]
  - Blood urine present [Unknown]
  - Haematocrit decreased [Unknown]
  - Peripheral swelling [Recovering/Resolving]
  - Hypertension [Recovering/Resolving]
  - Glomerular filtration rate decreased [Unknown]
  - Glucose urine present [Unknown]
  - Neutrophil count increased [Unknown]
  - Monocyte count increased [Unknown]
  - Blood glucose decreased [Unknown]
  - Red cell distribution width increased [Unknown]
  - Urine analysis abnormal [Unknown]
  - Blood uric acid increased [Unknown]
  - Blood urea increased [Unknown]
  - Swelling [Recovering/Resolving]
  - Red blood cell count decreased [Unknown]
  - Haemoglobin decreased [Unknown]
  - Blood creatinine increased [Recovering/Resolving]
  - Protein urine present [Unknown]
  - Abdominal discomfort [Recovering/Resolving]
  - Platelet count decreased [Recovering/Resolving]
  - Mean cell volume decreased [Unknown]
  - Lymphocyte count decreased [Unknown]
  - Protein total decreased [Unknown]
  - Mean platelet volume decreased [Unknown]
  - Glycosylated haemoglobin increased [Unknown]
  - Fatigue [Recovered/Resolved]
  - Headache [Recovered/Resolved]

NARRATIVE: CASE EVENT DATE: 20140617
